FAERS Safety Report 12760226 (Version 1)
Quarter: 2016Q3

REPORT INFORMATION
  Report Type: Spontaneous
  Country: US (occurrence: US)
  Receive Date: 20160919
  Receipt Date: 20160919
  Transmission Date: 20161109
  Serious: No
  Sender: FDA-Public Use
  Company Number: US-ASTELLAS-2015US044084

PATIENT
  Age: 85 Year
  Sex: Male

DRUGS (1)
  1. XTANDI [Suspect]
     Active Substance: ENZALUTAMIDE
     Indication: PROSTATE CANCER
     Dosage: 160 MG, ONCE DAILY (40 MG X 4 CAPSULES)
     Route: 048
     Dates: start: 20151022

REACTIONS (9)
  - Headache [Unknown]
  - Balance disorder [Unknown]
  - Musculoskeletal pain [Unknown]
  - Pain [Unknown]
  - Paraesthesia [Unknown]
  - Epistaxis [Unknown]
  - Somnolence [Unknown]
  - Feeling abnormal [Unknown]
  - Hot flush [Unknown]

NARRATIVE: CASE EVENT DATE: 20160216
